FAERS Safety Report 16908293 (Version 1)
Quarter: 2019Q4

REPORT INFORMATION
  Report Type: Spontaneous
  Country: JP (occurrence: JP)
  Receive Date: 20191011
  Receipt Date: 20191011
  Transmission Date: 20200122
  Serious: Yes (Death, Other)
  Sender: FDA-Public Use
  Company Number: JP-ACTELION-A-CH2019-196433

PATIENT

DRUGS (9)
  1. EPOPROSTENOL SODIUM. [Suspect]
     Active Substance: EPOPROSTENOL SODIUM
     Indication: PULMONARY ENDARTERECTOMY
     Dosage: 6 NG/KG, PER MIN
     Route: 042
  2. EPOPROSTENOL SODIUM. [Suspect]
     Active Substance: EPOPROSTENOL SODIUM
     Dosage: 10 NG/KG, PER MIN
     Route: 042
  3. BOSENTAN. [Suspect]
     Active Substance: BOSENTAN
     Indication: PULMONARY HYPERTENSION
     Route: 048
  4. SILDENAFIL. [Concomitant]
     Active Substance: SILDENAFIL
  5. BERAPROST [Concomitant]
     Active Substance: BERAPROST
  6. HEPARIN [Concomitant]
     Active Substance: HEPARIN SODIUM
  7. WARFARIN [Concomitant]
     Active Substance: WARFARIN
  8. EPOPROSTENOL SODIUM. [Suspect]
     Active Substance: EPOPROSTENOL SODIUM
     Indication: PULMONARY HYPERTENSION
     Dosage: 2 NG/KG, PER MIN
     Route: 042
     Dates: start: 2005
  9. TADALAFIL. [Concomitant]
     Active Substance: TADALAFIL

REACTIONS (19)
  - Cerebrovascular accident [Unknown]
  - Death [Fatal]
  - Sepsis [Unknown]
  - Angioplasty [Unknown]
  - Flushing [Unknown]
  - Right ventricular failure [Fatal]
  - Pulmonary arterial hypertension [Unknown]
  - PO2 decreased [Unknown]
  - Pulmonary haemorrhage [Fatal]
  - Pneumonia [Fatal]
  - Cardiac failure acute [Fatal]
  - Haemodynamic instability [Unknown]
  - Pulmonary arterial pressure increased [Unknown]
  - Vascular resistance pulmonary increased [Unknown]
  - Palpitations [Unknown]
  - Hypotension [Unknown]
  - Gastrointestinal haemorrhage [Fatal]
  - Drug effective for unapproved indication [Unknown]
  - Headache [Unknown]
